FAERS Safety Report 9860307 (Version 1)
Quarter: 2014Q1

REPORT INFORMATION
  Report Type: Spontaneous
  Country: US (occurrence: US)
  Receive Date: 20140201
  Receipt Date: 20140201
  Transmission Date: 20141002
  Serious: Yes (Death, Hospitalization, Other)
  Sender: FDA-Public Use
  Company Number: CHPA2014US001462

PATIENT
  Age: 22 Year
  Sex: Male

DRUGS (4)
  1. ACETAMINOPHEN (PARACETAMOL) [Suspect]
     Route: 048
  2. IBUPROFEN [Suspect]
     Route: 048
  3. ACETYLSALICYLIC ACID [Suspect]
     Route: 048
  4. DOXYLAMINE [Suspect]
     Route: 048

REACTIONS (13)
  - Completed suicide [Fatal]
  - Toxicity to various agents [Fatal]
  - Cardiac arrest [Fatal]
  - Ventricular fibrillation [Fatal]
  - Ventricular tachycardia [Fatal]
  - Mental status changes [Fatal]
  - Asthenia [Fatal]
  - Hearing impaired [Fatal]
  - Pyrexia [Fatal]
  - Hyperhidrosis [Fatal]
  - Hypotension [Fatal]
  - Bradycardia [Fatal]
  - Depressed level of consciousness [Fatal]
